FAERS Safety Report 7343374-4 (Version None)
Quarter: 2011Q1

REPORT INFORMATION
  Report Type: 
  Country: None (occurrence: None)
  Receive Date: 20110310
  Receipt Date: 20110307
  Transmission Date: 20110831
  Serious: Yes (Death, Hospitalization)
  Sender: FDA-Public Use
  Company Number: PHHY2011US15614

PATIENT
  Sex: Male
  Weight: 47.1 kg

DRUGS (9)
  1. SPIRONOLACTONE [Concomitant]
     Route: 048
  2. AFINITOR [Suspect]
     Dosage: 5 MG, DAILY
     Route: 048
     Dates: start: 20101201, end: 20110101
  3. LASIX [Concomitant]
     Route: 048
  4. TAMSULOSIN [Concomitant]
     Route: 048
  5. SUCRALFATE [Concomitant]
  6. LEVOTHYROXINE [Concomitant]
     Route: 048
  7. KEFLEX [Concomitant]
     Route: 048
  8. PRILOSEC [Concomitant]
     Route: 048
  9. NEXIUM [Concomitant]
     Route: 048

REACTIONS (2)
  - DEATH [None]
  - RESPIRATORY DISTRESS [None]
